FAERS Safety Report 7350987-2 (Version None)
Quarter: 2011Q1

REPORT INFORMATION
  Report Type: 
  Country: None (occurrence: None)
  Receive Date: 20110314
  Receipt Date: 20110308
  Transmission Date: 20110831
  Serious: Yes (Other)
  Sender: FDA-Public Use
  Company Number: US-PFIZER INC-2011038800

PATIENT
  Sex: Male
  Weight: 90.7 kg

DRUGS (2)
  1. MOBIC [Concomitant]
     Indication: ARTHRITIS
     Dosage: UNK
  2. LYRICA [Suspect]
     Indication: NEURALGIA
     Dosage: 75 MG, 1X/DAY
     Route: 048
     Dates: start: 20110213, end: 20110221

REACTIONS (4)
  - SPINAL OPERATION [None]
  - BALANCE DISORDER [None]
  - MUSCULAR WEAKNESS [None]
  - COORDINATION ABNORMAL [None]
